FAERS Safety Report 13922087 (Version 1)
Quarter: 2017Q3

REPORT INFORMATION
  Report Type: Spontaneous
  Country: US (occurrence: US)
  Receive Date: 20170830
  Receipt Date: 20170830
  Transmission Date: 20171127
  Serious: No
  Sender: FDA-Public Use
  Company Number: US-TARO-2017TAR00023

PATIENT
  Age: 70 Year
  Sex: Female

DRUGS (4)
  1. WARFARIN SODIUM TABLETS USP 5MG [Suspect]
     Active Substance: WARFARIN SODIUM
     Dosage: 12 MG, 1X/WEEK ON SUNDAYS
     Dates: start: 2015, end: 201612
  2. WARFARIN SODIUM TABLETS USP 5MG [Suspect]
     Active Substance: WARFARIN SODIUM
     Dosage: 12 MG, 1X/WEEK ON SUNDAY
     Dates: start: 201712, end: 20171217
  3. WARFARIN SODIUM TABLETS USP 5MG [Suspect]
     Active Substance: WARFARIN SODIUM
     Dosage: 10 MG, 6X/WEEK (ALL OTHER DAYS)
     Dates: start: 2015, end: 201612
  4. WARFARIN SODIUM TABLETS USP 5MG [Suspect]
     Active Substance: WARFARIN SODIUM
     Dosage: 10 MG, 6X/WEEK (ALL OTHER DAYS)
     Dates: start: 201612, end: 20161217

REACTIONS (1)
  - Rash [Recovered/Resolved]

NARRATIVE: CASE EVENT DATE: 201612
